FAERS Safety Report 8483353-7 (Version None)
Quarter: 2012Q3

REPORT INFORMATION
  Report Type: 
  Country: None (occurrence: None)
  Receive Date: 20120702
  Receipt Date: 20120619
  Transmission Date: 20120928
  Serious: Yes (Hospitalization, Other)
  Sender: FDA-Public Use
  Company Number: US-BAXTER-2012BAX008297

PATIENT
  Sex: Female
  Weight: 68.18 kg

DRUGS (9)
  1. ARALAST NP [Suspect]
     Indication: ALPHA-1 ANTI-TRYPSIN DEFICIENCY
     Dosage: 3700-5000 MG
     Route: 042
     Dates: start: 20070619
  2. OMERPRAZOLE [Concomitant]
     Route: 048
  3. MUCINEX DM [Concomitant]
     Route: 048
  4. ARALAST NP [Suspect]
     Route: 042
  5. DIAZEPAM [Concomitant]
     Dosage: 1/2 - 1 TAB
     Route: 048
  6. ARALAST NP [Suspect]
     Route: 042
  7. ARALAST NP [Suspect]
     Route: 042
     Dates: start: 20110601
  8. OXYGEN [Concomitant]
  9. NASAL SALINE [Concomitant]

REACTIONS (7)
  - RESPIRATORY TRACT INFECTION [None]
  - PALPITATIONS [None]
  - MALAISE [None]
  - HYPERTENSION [None]
  - PYREXIA [None]
  - HEADACHE [None]
  - DIZZINESS [None]
